FAERS Safety Report 9806344 (Version 2)
Quarter: 2014Q1

REPORT INFORMATION
  Report Type: Spontaneous
  Country: JP (occurrence: None)
  Receive Date: 20140107
  Receipt Date: 20140127
  Transmission Date: 20141002
  Serious: Yes (Hospitalization)
  Sender: FDA-Public Use
  Company Number: DSJ-2013-28739

PATIENT
  Age: 87 Year
  Sex: Female
  Weight: 49.8 kg

DRUGS (7)
  1. OLMETEC [Suspect]
     Indication: HYPERTENSION
     Dates: end: 20110415
  2. SITAGLIPTIN [Suspect]
     Indication: TYPE 2 DIABETES MELLITUS
     Dates: start: 20110318, end: 20110415
  3. GLIMEPIRIDE [Suspect]
     Indication: TYPE 2 DIABETES MELLITUS
     Dates: end: 20110415
  4. TRICHLORMETHIAZIDE [Suspect]
     Indication: TYPE 2 DIABETES MELLITUS
     Dates: end: 20110415
  5. FLUVASTATIN (FLUVSTATIN) (FLUVASTATIN) [Concomitant]
  6. CLINIDIPINE (CLINIDIPINE) (CLINIDIPINE) [Concomitant]
  7. MAGNESIUM OXIDE [Concomitant]

REACTIONS (1)
  - Pemphigoid [None]
